FAERS Safety Report 5241063-3 (Version None)
Quarter: 2007Q1

REPORT INFORMATION
  Report Type: 
  Country: None (occurrence: None)
  Receive Date: 20070214
  Receipt Date: 20070214
  Transmission Date: 20070707
  Serious: Yes (Hospitalization, Other)
  Sender: FDA-Public Use
  Company Number: None

PATIENT
  Age: 56 Year
  Sex: Male
  Weight: 119.2 kg

DRUGS (15)
  1. BENAZEPRIL HYDROCHLORIDE [Suspect]
     Indication: HYPERTENSION
     Dosage: PO (OUTSIDE HOSPITAL)
     Route: 048
     Dates: end: 20061011
  2. IBUPROFEN [Suspect]
     Dosage: PO 800MG TID PRN
     Route: 048
     Dates: start: 19961008
  3. ALPRAZOLAM [Concomitant]
  4. ASPIRIN [Concomitant]
  5. ATENOLOL [Concomitant]
  6. BACLOFEN [Concomitant]
  7. CALCIUM [Concomitant]
  8. FLUVASTATIN [Concomitant]
  9. GEMFIBROZIL [Concomitant]
  10. IBUPROFEN [Concomitant]
  11. INTERFERON BETA - 1A [Concomitant]
  12. M.V.I. [Concomitant]
  13. QUETIAPINE FUMARATE [Concomitant]
  14. RISEDRONATE SODIUM [Concomitant]
  15. SILDENAFIL CITRATE [Concomitant]

REACTIONS (1)
  - RENAL FAILURE ACUTE [None]
